FAERS Safety Report 5390836-5 (Version None)
Quarter: 2007Q3

REPORT INFORMATION
  Report Type: 
  Country: None (occurrence: None)
  Receive Date: 20070713
  Receipt Date: 20070702
  Transmission Date: 20080115
  Serious: Yes (Hospitalization)
  Sender: FDA-Public Use
  Company Number: TCI2007A02868

PATIENT
  Age: 70 Year
  Sex: Male

DRUGS (7)
  1. TCV-116-4833    (PIOGLITAZONE HYDROCHLORIDE, CANDESARTAN CILEXETIL) [Suspect]
     Indication: HYPERTENSION
     Dosage: 2 TAB. (2 TAB., 1 IN 1 D) PER ORAL
     Route: 048
     Dates: start: 20070525, end: 20070614
  2. TCV-116-4833    (PIOGLITAZONE HYDROCHLORIDE, CANDESARTAN CILEXETIL) [Suspect]
     Indication: TYPE 2 DIABETES MELLITUS
     Dosage: 2 TAB. (2 TAB., 1 IN 1 D) PER ORAL
     Route: 048
     Dates: start: 20070525, end: 20070614
  3. ZYRTEC [Concomitant]
  4. DIACORT (DIFLORASONE DIACETATE) [Concomitant]
  5. ASTAT (LANOCONAZOLE) [Concomitant]
  6. PIRENOXINE (PIRENOXINE) [Concomitant]
  7. MIOPIN (NEOSTIGMINE/NIORGANIC SALTS COMBINED DRUG) [Concomitant]

REACTIONS (3)
  - BLADDER CANCER [None]
  - HAEMATURIA [None]
  - MALIGNANT NEOPLASM OF RENAL PELVIS [None]
